FAERS Safety Report 9213635 (Version 1)
Quarter: 2013Q2

REPORT INFORMATION
  Report Type: Spontaneous
  Country: US (occurrence: US)
  Receive Date: 20130405
  Receipt Date: 20130405
  Transmission Date: 20140414
  Serious: Yes (Other)
  Sender: FDA-Public Use
  Company Number: US-PFIZER INC-2013105104

PATIENT
  Sex: Female

DRUGS (12)
  1. LEVOXYL [Suspect]
     Indication: HYPOTHYROIDISM
     Dosage: 100 UG, 1X/DAY
     Route: 048
     Dates: start: 20130314
  2. LEVOXYL [Suspect]
     Indication: THYROID DISORDER
  3. PROPAFENONE [Concomitant]
     Indication: ATRIAL FIBRILLATION
     Dosage: UNK, AS NEEDED
  4. BISOPROLOL [Concomitant]
     Indication: ATRIAL FIBRILLATION
     Dosage: UNK, AS NEEDED
  5. ALPRAZOLAM [Concomitant]
     Dosage: UNK, AS NEEDED
  6. DILTIAZEM [Concomitant]
     Dosage: UNK
  7. SIMVASTATIN [Concomitant]
     Dosage: UNK
  8. COENZYME Q10 [Concomitant]
     Dosage: UNK
  9. VITAMIN D3 [Concomitant]
     Dosage: UNK
  10. VITAMIN C [Concomitant]
     Dosage: UNK
  11. CALCIUM [Concomitant]
     Dosage: UNK
  12. FISH OIL [Concomitant]
     Dosage: UNK

REACTIONS (17)
  - Metabolic disorder [Not Recovered/Not Resolved]
  - Blood pressure decreased [Not Recovered/Not Resolved]
  - Blood pressure fluctuation [Not Recovered/Not Resolved]
  - Dysstasia [Not Recovered/Not Resolved]
  - Dyspnoea [Not Recovered/Not Resolved]
  - Heart rate irregular [Not Recovered/Not Resolved]
  - Palpitations [Not Recovered/Not Resolved]
  - Muscular weakness [Not Recovered/Not Resolved]
  - Feeling jittery [Not Recovered/Not Resolved]
  - Anxiety [Not Recovered/Not Resolved]
  - Insomnia [Not Recovered/Not Resolved]
  - Feeling cold [Not Recovered/Not Resolved]
  - Asthenia [Not Recovered/Not Resolved]
  - Headache [Not Recovered/Not Resolved]
  - Cold sweat [Not Recovered/Not Resolved]
  - Heart rate increased [Not Recovered/Not Resolved]
  - Endocrine disorder [Unknown]
